FAERS Safety Report 9786002 (Version 5)
Quarter: 2014Q2

REPORT INFORMATION
  Report Type: Spontaneous
  Country: US (occurrence: None)
  Receive Date: 20131224
  Receipt Date: 20140508
  Transmission Date: 20141212
  Serious: Yes (Death, Life-Threatening, Hospitalization, Other)
  Sender: FDA-Public Use
  Company Number: 2013US002893

PATIENT
  Age: 75 Year
  Sex: Female
  Weight: 57 kg

DRUGS (41)
  1. PONATINIB (AP24534) TABLET [Suspect]
     Indication: ACUTE LYMPHOCYTIC LEUKAEMIA
     Route: 048
     Dates: start: 20131205, end: 20131212
  2. VINCRISTINE [Suspect]
     Indication: CHEMOTHERAPY
     Dosage: 1 MG IN NACI 0.9 5% 50 ML
     Route: 042
     Dates: start: 20131202, end: 20131202
  3. ZOVIRAX  (ACICLOVIR) [Concomitant]
  4. ALBUTEROL (ALBUTEROL) [Concomitant]
  5. ZYLOPRIM (ALLOPURINOL) [Concomitant]
  6. CILOXAN (CIPROFLOXACIN HYDROCHLORIDE) [Concomitant]
  7. CIPRO (CIPROFLOXACIN) [Concomitant]
  8. BENADRYL (DIPHENHYDRAMINE HYDROCHLORIDE) YABLET [Concomitant]
  9. COLACE [Concomitant]
  10. CYMBALTA [Concomitant]
  11. SUBLIMAZE (FENTANYL CITRATE) [Concomitant]
  12. HUMALOG (INSULIN LISPRO) [Concomitant]
  13. CHRONULAC (LACTULOSE) [Concomitant]
  14. MAGNESIUM CITRATE (MAGNESIUM CITRATE) [Concomitant]
  15. GLUCOPHAGE (METFORMIN HYDROCHLORIDE) [Concomitant]
  16. THERAGRAN (VITAMINS NOS) [Concomitant]
  17. MULTIVITAMIN (VITAMINS NOS) LIQUID [Concomitant]
  18. PROTONIX (PANTOPRAZOLE SODIUM  SESQUIHYDRATE) [Concomitant]
  19. NEBUPENT (PENTAMIDINE ISETHIONATE) [Concomitant]
  20. MIRALAX [Concomitant]
  21. POTASSIUM CHLORIDE (POTASSIUM CHLORIDE) [Concomitant]
  22. DELTASONE (PREDNISONE) [Concomitant]
  23. SODIUM BICARBONATE  (SODIUM BICARBONATE) [Concomitant]
  24. SODIUM CHLORIDE [Concomitant]
  25. LASIX (FUROSEMIDE) [Concomitant]
  26. HEPARIN (HEPARIN SODIUM) [Concomitant]
  27. DUONEB (IPRATROPIUM BROMIDE, SALBUTAMOL SULFATE) [Concomitant]
  28. GLUCAGEN (GLUCAGON HYDROCHLORIDE) [Concomitant]
  29. INSULIN REGULAR (INSULINE PORCINE) [Concomitant]
  30. DEXTROSE (DEXTROSE) [Concomitant]
  31. DEXTROSE WATER (GLUCOSE) [Concomitant]
  32. VANCOCIN (VANCOMYCIN HYDROCHLORIDE) [Concomitant]
  33. DEXTROSE W/POTASSIUM CHLORIDE/SODIUM CHLORIDE (GLUCOSE, POTASSUM CHLORIDE, SODIUM CHLORIDE) [Concomitant]
  34. AMIDATE (ETOMIDATE) [Concomitant]
  35. SOLUCORTEF (HYDROCORTISONE SODIUM SUCCINATE) [Concomitant]
  36. REGLAN (METOCLOPRAMIDE HYDROCHLORIDE) [Concomitant]
  37. VERSED (MIDOZOLAM HYDROCHLORIDE) [Concomitant]
  38. BLISTEX MEDICATED LIP BALM (DIMETICONE, OXYBENZONE, PADIMATE O) [Concomitant]
  39. ATIVAN (LORAZEPAM) [Concomitant]
  40. ULTRAM (TRAMADOL HYDROCHLORIDE) [Concomitant]
  41. HYDREA (HYDROXYCARBAMIDE) [Suspect]
     Indication: PRODUCT USED FOR UNKNOWN INDICATION
     Dates: start: 20131202, end: 20131203

REACTIONS (15)
  - Ileus [None]
  - Sepsis [None]
  - Multi-organ failure [None]
  - Cardiac failure congestive [None]
  - Atrial fibrillation [None]
  - Pancytopenia [None]
  - Gastrointestinal haemorrhage [None]
  - Neoplasm progression [None]
  - Blood potassium decreased [None]
  - Urine output decreased [None]
  - Respiratory distress [None]
  - Blood glucose increased [None]
  - Pleural effusion [None]
  - Respiratory failure [None]
  - Renal failure [None]
